FAERS Safety Report 16687938 (Version 1)
Quarter: 2019Q3

REPORT INFORMATION
  Report Type: Spontaneous
  Country: US (occurrence: US)
  Receive Date: 20190809
  Receipt Date: 20190809
  Transmission Date: 20191004
  Serious: Yes (Other)
  Sender: FDA-Public Use
  Company Number: US-AMGEN-USASP2019125123

PATIENT
  Sex: Female

DRUGS (5)
  1. XGEVA [Suspect]
     Active Substance: DENOSUMAB
     Dosage: UNK, Q3MO
     Route: 065
  2. EXEMESTANE. [Concomitant]
     Active Substance: EXEMESTANE
     Indication: PROPHYLAXIS
     Dosage: 25 MILLIGRAM, QD
     Route: 048
     Dates: start: 201906
  3. IBRANCE [Suspect]
     Active Substance: PALBOCICLIB
     Indication: PROPHYLAXIS
     Dosage: UNK, QD (1 CAPSULE)
     Route: 048
     Dates: end: 201906
  4. XGEVA [Suspect]
     Active Substance: DENOSUMAB
     Indication: BONE DISORDER
     Dosage: UNK, QMO
     Route: 065
     Dates: start: 2017
  5. EVEROLIMUS. [Concomitant]
     Active Substance: EVEROLIMUS
     Indication: PROPHYLAXIS
     Dosage: 10 MILLIGRAM, QD
     Route: 048
     Dates: start: 201907

REACTIONS (2)
  - Neoplasm progression [Not Recovered/Not Resolved]
  - Off label use [Unknown]

NARRATIVE: CASE EVENT DATE: 201906
